FAERS Safety Report 19429484 (Version 1)
Quarter: 2021Q2

REPORT INFORMATION
  Report Type: Spontaneous
  Country: US (occurrence: US)
  Receive Date: 20210617
  Receipt Date: 20210617
  Transmission Date: 20210717
  Serious: Yes (Other)
  Sender: FDA-Public Use
  Company Number: US-ASTRAZENECA-2021A532378

PATIENT
  Age: 74 Year
  Sex: Male

DRUGS (2)
  1. OLAPARIB. [Suspect]
     Active Substance: OLAPARIB
     Indication: PROSTATE CANCER
     Route: 065
     Dates: start: 2019
  2. KEYTRUDA [Suspect]
     Active Substance: PEMBROLIZUMAB
     Indication: PROSTATE CANCER METASTATIC
     Dosage: UNK, EVERY 3 WEEKS
     Route: 042
     Dates: start: 20210519

REACTIONS (4)
  - Prostatic specific antigen abnormal [Unknown]
  - Prostatic specific antigen decreased [Unknown]
  - Product use in unapproved indication [Unknown]
  - Metastases to bone [Unknown]

NARRATIVE: CASE EVENT DATE: 20210519
